FAERS Safety Report 9678985 (Version 1)
Quarter: 2013Q4

REPORT INFORMATION
  Report Type: Spontaneous
  Country: US (occurrence: US)
  Receive Date: 20131108
  Receipt Date: 20131108
  Transmission Date: 20140711
  Serious: Yes (Other)
  Sender: FDA-Public Use
  Company Number: CHPA2013US016528

PATIENT
  Age: 70 Year
  Sex: Female

DRUGS (5)
  1. ACETYLSALICYLIC ACID [Suspect]
     Indication: JUVENILE IDIOPATHIC ARTHRITIS
     Dosage: UNK, UNK
     Route: 048
  2. IBUPROFEN [Suspect]
     Indication: JUVENILE IDIOPATHIC ARTHRITIS
     Dosage: 7, 8, OR 9 IN A DAY
  3. LEVOCETIRIZINE DIHYDROCHLORIDE [Concomitant]
     Indication: MULTIPLE ALLERGIES
     Dosage: UNK, UNK
  4. LEVOCETIRIZINE DIHYDROCHLORIDE [Concomitant]
     Indication: SINUS HEADACHE
  5. ALEVE [Concomitant]
     Indication: JUVENILE IDIOPATHIC ARTHRITIS
     Dosage: 2 DF, QD

REACTIONS (16)
  - Spinal fracture [Recovered/Resolved]
  - Nerve injury [Recovered/Resolved]
  - Sensory loss [Recovered/Resolved]
  - Fractured sacrum [Unknown]
  - Back pain [Unknown]
  - Peripheral coldness [Unknown]
  - Vitreous haemorrhage [Recovering/Resolving]
  - Blindness unilateral [Recovering/Resolving]
  - Muscle spasms [Unknown]
  - Arthralgia [Recovering/Resolving]
  - Ulcer haemorrhage [Recovered/Resolved]
  - Diarrhoea haemorrhagic [Recovered/Resolved]
  - Haematemesis [Recovered/Resolved]
  - Constipation [Recovered/Resolved]
  - Epistaxis [Unknown]
  - Feeling abnormal [Unknown]
